FAERS Safety Report 9157350 (Version 1)
Quarter: 2013Q1

REPORT INFORMATION
  Report Type: Spontaneous
  Country: US (occurrence: US)
  Receive Date: 20130312
  Receipt Date: 20130312
  Transmission Date: 20140127
  Serious: Yes (Other)
  Sender: FDA-Public Use
  Company Number: US-NOVOPROD-372339

PATIENT
  Sex: Male

DRUGS (1)
  1. NOVOLOG FLEXPEN [Suspect]
     Indication: PRODUCT USED FOR UNKNOWN INDICATION
     Route: 058

REACTIONS (3)
  - Visual acuity reduced [Unknown]
  - Cataract operation [Unknown]
  - Blood glucose increased [Unknown]
